FAERS Safety Report 12472065 (Version 1)
Quarter: 2016Q2

REPORT INFORMATION
  Report Type: Spontaneous
  Country: US (occurrence: None)
  Receive Date: 20160615
  Receipt Date: 20160615
  Transmission Date: 20160815
  Serious: Yes (Hospitalization)
  Sender: FDA-Public Use
  Company Number: None

PATIENT
  Age: 53 Year
  Sex: Female
  Weight: 117.7 kg

DRUGS (10)
  1. MAXALTA [Concomitant]
  2. ALBUTEROL. [Concomitant]
     Active Substance: ALBUTEROL
  3. BUTRANS [Concomitant]
     Active Substance: BUPRENORPHINE
  4. VITAMIN D [Concomitant]
     Active Substance: CHOLECALCIFEROL
  5. ONDANSETRON [Suspect]
     Active Substance: ONDANSETRON
     Indication: POSTOPERATIVE CARE
     Dosage: 4MG Q6HRS IV
     Route: 042
  6. BYSTOLIC [Concomitant]
     Active Substance: NEBIVOLOL HYDROCHLORIDE
  7. CALAN SR [Concomitant]
     Active Substance: VERAPAMIL HYDROCHLORIDE
  8. XANAX [Concomitant]
     Active Substance: ALPRAZOLAM
  9. CAMBIA [Concomitant]
     Active Substance: DICLOFENAC POTASSIUM
  10. CYMBALTA [Concomitant]
     Active Substance: DULOXETINE HYDROCHLORIDE

REACTIONS (1)
  - Supraventricular tachycardia [None]

NARRATIVE: CASE EVENT DATE: 20151117
